FAERS Safety Report 8807389 (Version 1)
Quarter: 2012Q4

REPORT INFORMATION
  Report Type: 
  Country: IN (occurrence: IN)
  Receive Date: 20120925
  Receipt Date: 20120925
  Transmission Date: 20130627
  Serious: Yes (Death)
  Sender: FDA-Public Use
  Company Number: PHHO2006IN08243

PATIENT
  Age: 35 Year
  Sex: Male
  Weight: 50 kg

DRUGS (1)
  1. GLIVEC [Suspect]
     Indication: CHRONIC MYELOID LEUKAEMIA
     Dosage: 400 mg, UNK
     Route: 048
     Dates: start: 20050919, end: 20051205

REACTIONS (5)
  - Death [Fatal]
  - Hepatosplenomegaly [Unknown]
  - Total cholesterol/HDL ratio increased [Unknown]
  - Pyrexia [Unknown]
  - Haemoglobin decreased [Unknown]
